FAERS Safety Report 6428920-7 (Version None)
Quarter: 2009Q4

REPORT INFORMATION
  Report Type: 
  Country: None (occurrence: None)
  Receive Date: 20091104
  Receipt Date: 20091104
  Transmission Date: 20100525
  Serious: Yes (Life-Threatening, Other)
  Sender: FDA-Public Use
  Company Number: None

PATIENT
  Age: 64 Year
  Sex: Female
  Weight: 81.8 kg

DRUGS (3)
  1. CITALOPRAM HYDROBROMIDE [Suspect]
     Indication: ANXIETY
     Dosage: 10 MG 1 X DAY PO
     Route: 048
     Dates: start: 20081111, end: 20090801
  2. CITALOPRAM HYDROBROMIDE [Suspect]
     Indication: PAIN
     Dosage: 10 MG 1 X DAY PO
     Route: 048
     Dates: start: 20081111, end: 20090801
  3. CITALOPRAM HYDROBROMIDE [Suspect]

REACTIONS (4)
  - DRUG HYPERSENSITIVITY [None]
  - HORMONE LEVEL ABNORMAL [None]
  - METAL POISONING [None]
  - PRODUCT QUALITY ISSUE [None]
